FAERS Safety Report 24120647 (Version 1)
Quarter: 2024Q3

REPORT INFORMATION
  Report Type: Spontaneous
  Country: GB (occurrence: GB)
  Receive Date: 20240722
  Receipt Date: 20240722
  Transmission Date: 20241017
  Serious: Yes (Hospitalization)
  Sender: JUBILANT
  Company Number: GB-JUBILANT CADISTA PHARMACEUTICALS-2024JUB00057

PATIENT
  Sex: Male

DRUGS (1)
  1. METHYLPREDNISOLONE [Suspect]
     Active Substance: METHYLPREDNISOLONE
     Indication: Pulmonary haemosiderosis
     Dosage: 10 MG/KG
     Route: 042

REACTIONS (1)
  - Bradycardia [Recovered/Resolved]
